FAERS Safety Report 8727051 (Version 2)
Quarter: 2012Q4

REPORT INFORMATION
  Report Type: 
  Country: JP (occurrence: JP)
  Receive Date: 20120816
  Receipt Date: 20120830
  Transmission Date: 20130627
  Serious: No
  Sender: FDA-Public Use
  Company Number: JP-ROCHE-1101491

PATIENT
  Age: 42 Year
  Sex: Female
  Weight: 60 kg

DRUGS (5)
  1. XELODA [Suspect]
     Indication: BREAST CANCER METASTATIC
     Route: 048
     Dates: start: 20091029, end: 20120604
  2. XELODA [Suspect]
     Indication: BREAST CANCER METASTATIC
     Route: 048
     Dates: start: 20120605, end: 20120806
  3. DOCETAXEL [Concomitant]
     Indication: BREAST CANCER METASTATIC
     Dosage: Nine cycles
     Route: 041
     Dates: start: 20091029
  4. PYDOXAL [Concomitant]
     Route: 048
     Dates: start: 20090507
  5. PROTECADIN [Concomitant]
     Route: 048
     Dates: start: 20090507

REACTIONS (2)
  - Drug eruption [Recovering/Resolving]
  - Impetigo [Recovering/Resolving]
